FAERS Safety Report 15686083 (Version 2)
Quarter: 2019Q2

REPORT INFORMATION
  Report Type: Spontaneous
  Country: US (occurrence: US)
  Receive Date: 20181204
  Receipt Date: 20190521
  Transmission Date: 20190711
  Serious: Yes (Other)
  Sender: FDA-Public Use
  Company Number: US-SA-2018SA326993

PATIENT
  Age: 50 Year
  Sex: Female
  Weight: 94.34 kg

DRUGS (13)
  1. OMEGA-3 FATTY ACIDS [Concomitant]
     Active Substance: OMEGA-3 FATTY ACIDS
  2. B COMPLEX [VITAMIN B COMPLEX] [Concomitant]
  3. HERCEPTIN [Concomitant]
     Active Substance: TRASTUZUMAB
  4. DOCETAXEL. [Suspect]
     Active Substance: DOCETAXEL
     Indication: BREAST CANCER FEMALE
     Dosage: 158.3 MG, Q3W
     Route: 042
     Dates: start: 20150306, end: 20150306
  5. PERJETA [Concomitant]
     Active Substance: PERTUZUMAB
     Dosage: UNK UNK, UNK
  6. GLUCOSAMINE [Concomitant]
     Active Substance: GLUCOSAMINE
  7. FEMARA [Concomitant]
     Active Substance: LETROZOLE
  8. CALCIUM CARBONATE. [Concomitant]
     Active Substance: CALCIUM CARBONATE
  9. AROMASIN [Concomitant]
     Active Substance: EXEMESTANE
     Dosage: UNK UNK, UNK
  10. PARAPLATIN [Concomitant]
     Active Substance: CARBOPLATIN
  11. DOCETAXEL. [Suspect]
     Active Substance: DOCETAXEL
     Dosage: 158.3 MG, Q3W
     Route: 042
     Dates: start: 20150618, end: 20150618
  12. IBUPROFEN. [Concomitant]
     Active Substance: IBUPROFEN
  13. FERROUS GLUCONATE [Concomitant]
     Active Substance: FERROUS GLUCONATE

REACTIONS (3)
  - Alopecia [Recovering/Resolving]
  - Emotional distress [Unknown]
  - Anxiety [Unknown]

NARRATIVE: CASE EVENT DATE: 201512
